FAERS Safety Report 15953579 (Version 1)
Quarter: 2019Q1

REPORT INFORMATION
  Report Type: Spontaneous
  Country: IT (occurrence: IT)
  Receive Date: 20190213
  Receipt Date: 20190213
  Transmission Date: 20190417
  Serious: Yes (Hospitalization)
  Sender: FDA-Public Use
  Company Number: IT-TEVA-2019-IT-1009557

PATIENT
  Age: 65 Year
  Sex: Female

DRUGS (3)
  1. RALOXIFENE HYDROCHLORIDE. [Suspect]
     Active Substance: RALOXIFENE HYDROCHLORIDE
     Indication: OSTEOPOROSIS
     Dosage: 1 DOSAGE FORMS DAILY;
     Route: 048
     Dates: start: 20070801, end: 20110725
  2. MODURETIC 5-50 [Concomitant]
     Active Substance: AMILORIDE HYDROCHLORIDE\HYDROCHLOROTHIAZIDE
     Dosage: 5/50 MG
     Route: 065
  3. VITAMINA D [Concomitant]
     Route: 065

REACTIONS (2)
  - Hemiplegia [Recovered/Resolved]
  - Cerebellar ischaemia [Recovered/Resolved]

NARRATIVE: CASE EVENT DATE: 20100801
